FAERS Safety Report 12671942 (Version 1)
Quarter: 2016Q3

REPORT INFORMATION
  Report Type: Spontaneous
  Country: CA (occurrence: CA)
  Receive Date: 20160822
  Receipt Date: 20160822
  Transmission Date: 20161109
  Serious: Yes (Death, Other)
  Sender: FDA-Public Use
  Company Number: CA-VIIV HEALTHCARE LIMITED-CA2016GSK119399

PATIENT
  Age: 43 Year
  Sex: Male

DRUGS (36)
  1. CHROMIUM [Concomitant]
     Active Substance: CHROMIC CHLORIDE\CHROMIUM
  2. NIACIN. [Concomitant]
     Active Substance: NIACIN
  3. OTRIVIN [Concomitant]
     Active Substance: XYLOMETAZOLINE
  4. TESTOSTERONE. [Concomitant]
     Active Substance: TESTOSTERONE
  5. VITAMIN B12 [Concomitant]
     Active Substance: CYANOCOBALAMIN
  6. VIRAMUNE [Suspect]
     Active Substance: NEVIRAPINE
     Indication: PRODUCT USED FOR UNKNOWN INDICATION
     Dosage: 400 MG, UNK
     Route: 048
  7. SERZONE [Concomitant]
     Active Substance: NEFAZODONE HYDROCHLORIDE
  8. BETACAROTENE [Concomitant]
     Active Substance: .BETA.-CAROTENE
  9. DEXEDRINE [Concomitant]
     Active Substance: DEXTROAMPHETAMINE SULFATE
  10. LECITHIN [Concomitant]
     Active Substance: LECITHIN
  11. MINOCYCLINE [Concomitant]
     Active Substance: MINOCYCLINE\MINOCYCLINE HYDROCHLORIDE
  12. SULFAMETHOXAZOLE-TRIMETHOPRIM (SMZ) [Concomitant]
     Active Substance: SULFAMETHOXAZOLE\TRIMETHOPRIM
  13. VITAMIN B COMPLEX [Concomitant]
     Active Substance: CYANOCOBALAMIN\DEXPANTHENOL\NIACINAMIDE\PYRIDOXINE HYDROCHLORIDE\RIBOFLAVIN 5^-PHOSPHATE SODIUM\THIAMINE HYDROCHLORIDE\VITAMIN B COMPLEX
  14. VITAMIN E [Concomitant]
     Active Substance: .ALPHA.-TOCOPHEROL
  15. PROLEUKIN [Suspect]
     Active Substance: ALDESLEUKIN
     Indication: PRODUCT USED FOR UNKNOWN INDICATION
     Dosage: 4.5 MILLION IU, BID
     Route: 058
  16. FLURBIPROFEN. [Concomitant]
     Active Substance: FLURBIPROFEN
  17. FOLIC ACID. [Concomitant]
     Active Substance: FOLIC ACID
  18. SUDAFED [Concomitant]
     Active Substance: PSEUDOEPHEDRINE HYDROCHLORIDE
  19. GLYCERIN. [Concomitant]
     Active Substance: GLYCERIN
  20. GRAVOL [Concomitant]
     Active Substance: DIMENHYDRINATE
  21. MAGNESIUM [Concomitant]
     Active Substance: MAGNESIUM
  22. RATIO-TECNAL [Concomitant]
  23. VITAMIN C [Concomitant]
     Active Substance: ASCORBIC ACID
  24. 3TC [Suspect]
     Active Substance: LAMIVUDINE
     Indication: PRODUCT USED FOR UNKNOWN INDICATION
     Dosage: 300 MG, UNK
     Route: 048
  25. ZERIT [Suspect]
     Active Substance: STAVUDINE
     Indication: PRODUCT USED FOR UNKNOWN INDICATION
     Dosage: 80 MG, UNK
     Route: 048
  26. BECLOMETHASONE DIPROPIONATE [Concomitant]
     Active Substance: BECLOMETHASONE DIPROPIONATE
  27. SENNOSIDES. [Concomitant]
     Active Substance: SENNOSIDES
     Dosage: 8.6 MG, UNK
  28. VITAMIN A [Concomitant]
     Active Substance: VITAMIN A
  29. ACIDOPHILUS [Concomitant]
     Active Substance: LACTOBACILLUS ACIDOPHILUS
  30. CHLORAL HYDRATE [Concomitant]
     Active Substance: CHLORAL HYDRATE
  31. SELENIUM [Concomitant]
     Active Substance: SELENIUM
  32. DIDANOSINE. [Suspect]
     Active Substance: DIDANOSINE
     Indication: PRODUCT USED FOR UNKNOWN INDICATION
     Dosage: 400 MG, UNK
     Route: 048
  33. GINKGO BILOBA [Concomitant]
     Active Substance: GINKGO
  34. IMITREX [Concomitant]
     Active Substance: SUMATRIPTAN SUCCINATE
  35. METOCLOPRAMIDE. [Concomitant]
     Active Substance: METOCLOPRAMIDE
  36. ZINC [Concomitant]
     Active Substance: ZINC\ZINC CHLORIDE

REACTIONS (9)
  - Hepatic failure [Unknown]
  - Gamma-glutamyltransferase increased [Unknown]
  - Abdominal discomfort [Unknown]
  - Vomiting [Unknown]
  - Alanine aminotransferase increased [Unknown]
  - Hepatitis fulminant [Unknown]
  - Jaundice [Unknown]
  - Death [Fatal]
  - Ascites [Unknown]
